FAERS Safety Report 7960813 (Version 3)
Quarter: 2013Q2

REPORT INFORMATION
  Report Type: Spontaneous
  Country: IT (occurrence: None)
  Receive Date: 20110509
  Receipt Date: 20130521
  Transmission Date: 20140414
  Serious: Yes (Hospitalization, Other)
  Sender: FDA-Public Use
  Company Number: AUR-APL-2011-01481

PATIENT
  Age: 88 Year
  Sex: Male

DRUGS (8)
  1. CARVEDILOL [Suspect]
     Indication: PRODUCT USED FOR UNKNOWN INDICATION
     Dosage: 6.25MG-DAILY-ORAL
     Route: 048
     Dates: start: 20090407, end: 20110407
  2. CORDARONE [Suspect]
     Indication: EXTRASYSTOLES
     Dosage: 200MG-DAILY-ORAL
     Route: 048
     Dates: start: 20090407, end: 20110407
  3. IRBESARTAN [Suspect]
     Indication: PRODUCT USED FOR UNKNOWN INDICATION
     Dosage: 150MG-DAILY-ORAL
     Route: 048
     Dates: start: 20090407, end: 20110407
  4. MODURETIC [Suspect]
     Indication: PRODUCT USED FOR UNKNOWN INDICATION
     Dosage: 5/50MG-DAILY-ORAL
     Route: 048
     Dates: start: 20090407, end: 20110407
  5. ZYLORIC (ALLOPURINOL) [Concomitant]
  6. CARDIOASPIRIN (ACETYLASLIYLIC ACID) [Concomitant]
  7. CARDURA (DOXAZOSIN MESILATE) [Concomitant]
  8. CASODEX (BICALUTAMIDE) [Concomitant]

REACTIONS (5)
  - BRADYCARDIA [None]
  - HYPERKALAEMIA [None]
  - Blood pressure systolic increased [None]
  - Drug interaction [None]
  - Electrocardiogram QT prolonged [None]
